FAERS Safety Report 11030429 (Version 1)
Quarter: 2015Q2

REPORT INFORMATION
  Report Type: Spontaneous
  Country: US (occurrence: None)
  Receive Date: 20150413
  Receipt Date: 20150413
  Transmission Date: 20150821
  Serious: Yes (Hospitalization, Other)
  Sender: FDA-Public Use
  Company Number: US-H14001-15-00520

PATIENT
  Age: 74 Year
  Sex: Male

DRUGS (10)
  1. VITAMIN D2 [Suspect]
     Active Substance: ERGOCALCIFEROL
     Indication: PRODUCT USED FOR UNKNOWN INDICATION
  2. LASIX [Suspect]
     Active Substance: FUROSEMIDE
     Indication: HYPERTENSION
     Dosage: 80 MG IN A.M. AND 40 MG IN P.M, UNKNOWN
  3. DARBOPOEITIN-ALPHA [Suspect]
     Active Substance: DARBEPOETIN ALFA
     Indication: PRODUCT USED FOR UNKNOWN INDICATION
     Dosage: 60 MCG, 1 IN 1 WK), SUBCUTANEOUS?
     Route: 058
  4. TEKTURNA [Suspect]
     Active Substance: ALISKIREN HEMIFUMARATE
     Indication: HYPERTENSION
     Dosage: 150 MG, 1 D, UNKNOWN
  5. DIOVAN [Suspect]
     Active Substance: VALSARTAN
     Indication: HYPERTENSION
     Dosage: 320 MG (160 MG, 2 IN 1 D), UNKNOWN
  6. ASPIRIN (ACETYLSALICYLIC ACID) [Suspect]
     Active Substance: ASPIRIN
     Indication: PRODUCT USED FOR UNKNOWN INDICATION
     Dosage: UNKNOWN, SUBCUTANEOUS
     Route: 058
  7. CLONIDINE. [Suspect]
     Active Substance: CLONIDINE
     Indication: HYPERTENSION
     Dosage: 0.9 MG (0.3 MG, 3 IN 1 D), UNKNOWN
  8. COREG [Suspect]
     Active Substance: CARVEDILOL
     Indication: HYPERTENSION
     Dosage: 50 MG (25 MG, 2 IN 1 D), UNKNOWN
  9. MINOXIDIL (MINOXIDIL) [Suspect]
     Active Substance: MINOXIDIL
     Indication: HYPERTENSION
     Dosage: 5 MG (2.5 MG, 2 IN 1 D), UNKNOWN
  10. CLOPIDOGREL [Suspect]
     Active Substance: CLOPIDOGREL BISULFATE
     Indication: PRODUCT USED FOR UNKNOWN INDICATION

REACTIONS (5)
  - Chronic kidney disease [None]
  - Oedema [None]
  - Fatigue [None]
  - Respiration abnormal [None]
  - General physical condition abnormal [None]
